FAERS Safety Report 22627709 (Version 1)
Quarter: 2023Q2

REPORT INFORMATION
  Report Type: Spontaneous
  Country: US (occurrence: US)
  Receive Date: 20230622
  Receipt Date: 20230622
  Transmission Date: 20230721
  Serious: Yes (Hospitalization)
  Sender: FDA-Public Use
  Company Number: US-RISINGPHARMA-US-2023RISSPO00095

PATIENT
  Age: 71 Year
  Sex: Male

DRUGS (17)
  1. VERAPAMIL HYDROCHLORIDE [Suspect]
     Active Substance: VERAPAMIL HYDROCHLORIDE
     Indication: SUNCT syndrome
     Route: 065
     Dates: start: 2019
  2. LYRICA [Suspect]
     Active Substance: PREGABALIN
     Indication: SUNCT syndrome
     Route: 065
     Dates: start: 2019
  3. VALSARTAN [Suspect]
     Active Substance: VALSARTAN
     Indication: SUNCT syndrome
     Route: 065
     Dates: start: 2019
  4. MELOXICAM [Suspect]
     Active Substance: MELOXICAM
     Indication: SUNCT syndrome
     Route: 065
     Dates: start: 2019
  5. METHADONE [Suspect]
     Active Substance: METHADONE HYDROCHLORIDE
     Indication: SUNCT syndrome
     Route: 065
     Dates: start: 201905
  6. PROCHLORPERAZINE [Suspect]
     Active Substance: PROCHLORPERAZINE
     Indication: SUNCT syndrome
     Route: 065
     Dates: start: 201905
  7. TRILEPTAL [Suspect]
     Active Substance: OXCARBAZEPINE
     Indication: SUNCT syndrome
     Route: 065
     Dates: start: 2019
  8. TYLENOL [Suspect]
     Active Substance: ACETAMINOPHEN
     Indication: SUNCT syndrome
     Route: 065
     Dates: start: 2019
  9. OXYCONTIN [Suspect]
     Active Substance: OXYCODONE HYDROCHLORIDE
     Indication: SUNCT syndrome
     Route: 065
     Dates: start: 201905
  10. OXYCONTIN [Suspect]
     Active Substance: OXYCODONE HYDROCHLORIDE
     Indication: SUNCT syndrome
     Route: 065
  11. LIDOCAINE [Concomitant]
     Active Substance: LIDOCAINE
     Indication: SUNCT syndrome
     Route: 065
     Dates: start: 201905
  12. MEXILETINE [Concomitant]
     Active Substance: MEXILETINE
     Indication: SUNCT syndrome
     Route: 065
     Dates: start: 201905
  13. CYMBALTA [Concomitant]
     Active Substance: DULOXETINE HYDROCHLORIDE
     Indication: SUNCT syndrome
     Route: 065
     Dates: start: 2019
  14. LAMICTAL [Concomitant]
     Active Substance: LAMOTRIGINE
     Indication: SUNCT syndrome
     Route: 065
     Dates: start: 2019
  15. DEPAKOTE [Concomitant]
     Active Substance: DIVALPROEX SODIUM
     Indication: SUNCT syndrome
     Route: 065
     Dates: start: 2019
  16. TEGRETOL [Concomitant]
     Active Substance: CARBAMAZEPINE
     Indication: SUNCT syndrome
     Route: 065
     Dates: start: 2019
  17. INDOMETHACIN [Concomitant]
     Active Substance: INDOMETHACIN
     Indication: SUNCT syndrome
     Route: 065
     Dates: start: 2019

REACTIONS (2)
  - Treatment failure [Unknown]
  - Product use in unapproved indication [Unknown]

NARRATIVE: CASE EVENT DATE: 20190101
